FAERS Safety Report 5488985-6 (Version None)
Quarter: 2007Q4

REPORT INFORMATION
  Report Type: 
  Country: None (occurrence: None)
  Receive Date: 20071015
  Receipt Date: 20070626
  Transmission Date: 20080405
  Serious: No
  Sender: FDA-Public Use
  Company Number: 2007SP002364

PATIENT
  Age: 39 Year
  Sex: Male
  Weight: 90.7194 kg

DRUGS (12)
  1. LUNESTA [Suspect]
     Indication: INSOMNIA
     Dosage: 2 MG;QX;ORAL
     Route: 048
     Dates: start: 20060625, end: 20060625
  2. PREDNISONE TAB [Concomitant]
  3. PROSCAR [Concomitant]
  4. GEODON [Concomitant]
  5. CELEXA [Concomitant]
  6. PROVIGIL [Concomitant]
  7. SYNTHROID [Concomitant]
  8. ZYRTEC [Concomitant]
  9. PRILOSEC [Concomitant]
  10. VESICARE [Concomitant]
  11. TAMSULOSIN HCL [Concomitant]
  12. ULTRAM [Concomitant]

REACTIONS (2)
  - PARADOXICAL DRUG REACTION [None]
  - PARASOMNIA [None]
